FAERS Safety Report 19814816 (Version 1)
Quarter: 2021Q3

REPORT INFORMATION
  Report Type: Spontaneous
  Country: US (occurrence: US)
  Receive Date: 20210907
  Receipt Date: 20210907
  Transmission Date: 20211014
  Serious: Yes (Death)
  Sender: FDA-Public Use
  Company Number: None

PATIENT
  Age: 74 Year
  Sex: Male
  Weight: 98 kg

DRUGS (1)
  1. RIVAROXABAN (RIVAROXABAN 20MG TAB) [Suspect]
     Active Substance: RIVAROXABAN
     Indication: ATRIAL FIBRILLATION
     Route: 048
     Dates: start: 20190711, end: 20210811

REACTIONS (8)
  - Intraventricular haemorrhage [None]
  - Brain oedema [None]
  - Fall [None]
  - Cerebral haemorrhage [None]
  - Pulseless electrical activity [None]
  - Cardiac arrest [None]
  - Cerebral mass effect [None]
  - Haemorrhage intracranial [None]

NARRATIVE: CASE EVENT DATE: 20210812
